FAERS Safety Report 18073483 (Version 1)
Quarter: 2020Q3

REPORT INFORMATION
  Report Type: Spontaneous
  Country: AT (occurrence: AT)
  Receive Date: 20200727
  Receipt Date: 20200727
  Transmission Date: 20201103
  Serious: Yes (Hospitalization, Other)
  Sender: FDA-Public Use
  Company Number: AT-GLAXOSMITHKLINE-AT2020136154

PATIENT
  Age: 72 Year
  Sex: Female

DRUGS (19)
  1. PREGABALIN. [Suspect]
     Active Substance: PREGABALIN
     Indication: PRODUCT USED FOR UNKNOWN INDICATION
     Dosage: UNK
     Route: 065
  2. CLOMIPRAMINE CHLORHYDRATE [Suspect]
     Active Substance: CLOMIPRAMINE HYDROCHLORIDE
     Dosage: 150 MG, QD
     Route: 048
  3. MAPROTILIN [Suspect]
     Active Substance: MAPROTILINE
     Indication: PRODUCT USED FOR UNKNOWN INDICATION
     Dosage: UNK
     Route: 065
  4. MOCLOBEMID [Suspect]
     Active Substance: MOCLOBEMIDE
     Indication: PRODUCT USED FOR UNKNOWN INDICATION
     Dosage: UNK
     Route: 065
  5. LAMOTRIGINE. [Suspect]
     Active Substance: LAMOTRIGINE
     Indication: SEDATION
     Dosage: UNK
     Route: 065
  6. ENOXAPARIN [Suspect]
     Active Substance: ENOXAPARIN
     Indication: THROMBOSIS PROPHYLAXIS
     Dosage: 40 MG, QD
     Route: 058
  7. AMITRIPTYLINE CHLORHYDRATE [Suspect]
     Active Substance: AMITRIPTYLINE HYDROCHLORIDE
     Indication: DEPRESSION
     Dosage: UNK
     Route: 065
  8. DULOXETINE. [Suspect]
     Active Substance: DULOXETINE
     Indication: PRODUCT USED FOR UNKNOWN INDICATION
     Dosage: UNK
     Route: 048
  9. CLOMIPRAMIN [Suspect]
     Active Substance: CLOMIPRAMINE
     Dosage: 12.5 MG, QD
     Route: 042
  10. ZOLPIDEM [Suspect]
     Active Substance: ZOLPIDEM TARTRATE
     Indication: INSOMNIA
     Dosage: UNK
     Route: 065
  11. LITHIUM. [Suspect]
     Active Substance: LITHIUM
     Indication: PRODUCT USED FOR UNKNOWN INDICATION
     Dosage: UNK
     Route: 065
  12. DULOXETINE. [Suspect]
     Active Substance: DULOXETINE
     Dosage: UNK
     Route: 048
  13. CLOMIPRAMIN [Suspect]
     Active Substance: CLOMIPRAMINE
     Indication: PRODUCT USED FOR UNKNOWN INDICATION
     Dosage: 25 MG, QD
     Route: 042
  14. CLOMIPRAMINE CHLORHYDRATE [Suspect]
     Active Substance: CLOMIPRAMINE HYDROCHLORIDE
     Indication: PRODUCT USED FOR UNKNOWN INDICATION
     Dosage: 75 MG, QD
     Route: 048
  15. QUETIAPINE. [Suspect]
     Active Substance: QUETIAPINE
     Indication: PRODUCT USED FOR UNKNOWN INDICATION
     Dosage: UNK
     Route: 065
  16. MIRTAZAPINE. [Suspect]
     Active Substance: MIRTAZAPINE
     Indication: PRODUCT USED FOR UNKNOWN INDICATION
     Dosage: 30 MG, QD
     Route: 065
  17. TOPIRAMATE. [Suspect]
     Active Substance: TOPIRAMATE
     Indication: THROMBOSIS PROPHYLAXIS
     Dosage: UNK
     Route: 065
  18. VALIQUID [Suspect]
     Active Substance: DIAZEPAM
     Indication: SEDATION
     Dosage: 6 MG, QD
     Route: 048
  19. CLOMIPRAMIN [Suspect]
     Active Substance: CLOMIPRAMINE
     Indication: PRODUCT USED FOR UNKNOWN INDICATION
     Dosage: UNK
     Route: 048

REACTIONS (22)
  - Drug ineffective [Unknown]
  - Decreased interest [Unknown]
  - Depressed mood [Unknown]
  - Hospitalisation [Unknown]
  - Fracture [Unknown]
  - Decreased activity [Unknown]
  - Restlessness [Unknown]
  - Chest discomfort [Unknown]
  - Dizziness [Unknown]
  - Suicidal ideation [Unknown]
  - Palpitations [Unknown]
  - Disturbance in attention [Unknown]
  - Depression [Unknown]
  - Tremor [Unknown]
  - Nausea [Unknown]
  - Weight decreased [Unknown]
  - Tachycardia [Unknown]
  - Feeling abnormal [Unknown]
  - Abdominal discomfort [Unknown]
  - Hypotension [Unknown]
  - Sleep disorder [Unknown]
  - Decreased appetite [Unknown]

NARRATIVE: CASE EVENT DATE: 2014
